FAERS Safety Report 5909399-8 (Version None)
Quarter: 2008Q4

REPORT INFORMATION
  Report Type: 
  Country: None (occurrence: None)
  Receive Date: 20081006
  Receipt Date: 20080930
  Transmission Date: 20090506
  Serious: No
  Sender: FDA-Public Use
  Company Number: US-B.I. PHARMACEUTICALS,INC./RIDGEFIELD-2008-BP-14228BP

PATIENT
  Sex: Female

DRUGS (1)
  1. MICARDIS [Suspect]
     Indication: HYPERTENSION
     Dosage: 40MG
     Route: 048
     Dates: start: 20080808

REACTIONS (6)
  - CHEST PAIN [None]
  - DIZZINESS [None]
  - HEADACHE [None]
  - INSOMNIA [None]
  - NAUSEA [None]
  - SUICIDAL IDEATION [None]
